FAERS Safety Report 5895057-5 (Version None)
Quarter: 2008Q3

REPORT INFORMATION
  Report Type: 
  Country: None (occurrence: None)
  Receive Date: 20080924
  Receipt Date: 20080922
  Transmission Date: 20090109
  Serious: Yes (Other)
  Sender: FDA-Public Use
  Company Number: US-BRISTOL-MYERS SQUIBB COMPANY-14282875

PATIENT
  Sex: Female

DRUGS (4)
  1. ORENCIA [Suspect]
     Indication: RHEUMATOID ARTHRITIS
     Dosage: RECEIVED 10 INFUSION. 1 DOSAGEFORM = 500 (UNIT NOT SPECIFIED).
     Route: 042
     Dates: start: 20070124, end: 20080723
  2. RELAFEN [Concomitant]
  3. METHOTREXATE [Concomitant]
  4. PREMARIN [Concomitant]

REACTIONS (1)
  - ACTINIC KERATOSIS [None]
